FAERS Safety Report 12637435 (Version 2)
Quarter: 2016Q3

REPORT INFORMATION
  Report Type: Spontaneous
  Country: US (occurrence: US)
  Receive Date: 20160809
  Receipt Date: 20160822
  Transmission Date: 20161109
  Serious: No
  Sender: FDA-Public Use
  Company Number: US-BEH-2016061937

PATIENT
  Sex: Female
  Weight: 82.1 kg

DRUGS (28)
  1. HYDRALURONIC [Concomitant]
  2. VITAMIN C [Concomitant]
     Active Substance: ASCORBIC ACID
  3. SODIUM CHLORIDE. [Concomitant]
     Active Substance: SODIUM CHLORIDE
  4. SYMBICORT [Concomitant]
     Active Substance: BUDESONIDE\FORMOTEROL FUMARATE DIHYDRATE
  5. NASONEX [Concomitant]
     Active Substance: MOMETASONE FUROATE
  6. PROVENTIL [Concomitant]
     Active Substance: ALBUTEROL
  7. ADVAIR HFA [Concomitant]
     Active Substance: FLUTICASONE PROPIONATE\SALMETEROL XINAFOATE
  8. PULMICORT TURBUHALER [Concomitant]
     Active Substance: BUDESONIDE
  9. GLUCOSAMINE [Concomitant]
     Active Substance: GLUCOSAMINE
  10. PRIVIGEN [Suspect]
     Active Substance: HUMAN IMMUNOGLOBULIN G
     Route: 042
  11. PRIVIGEN [Suspect]
     Active Substance: HUMAN IMMUNOGLOBULIN G
     Indication: IMMUNODEFICIENCY COMMON VARIABLE
     Route: 042
  12. EPIPEN [Concomitant]
     Active Substance: EPINEPHRINE
  13. COMBIVENT [Concomitant]
     Active Substance: ALBUTEROL SULFATE\IPRATROPIUM BROMIDE
  14. CALCIUM [Concomitant]
     Active Substance: CALCIUM
  15. OMEGA [Concomitant]
     Active Substance: CONVALLARIA MAJALIS\CRATAEGUS LAEVIGATA LEAF\PROXYPHYLLINE
  16. DIPHENHYDRAMINE. [Concomitant]
     Active Substance: DIPHENHYDRAMINE
  17. VITAMIN D [Concomitant]
     Active Substance: CHOLECALCIFEROL
  18. SINGULAIR [Concomitant]
     Active Substance: MONTELUKAST SODIUM
  19. VENTOLIN [Concomitant]
     Active Substance: ALBUTEROL SULFATE
  20. PRIVIGEN [Suspect]
     Active Substance: HUMAN IMMUNOGLOBULIN G
     Dosage: 25 G, QOW
     Route: 042
     Dates: start: 20090225
  21. ACETAMINOPHEN. [Concomitant]
     Active Substance: ACETAMINOPHEN
  22. ATROVENT [Concomitant]
     Active Substance: IPRATROPIUM BROMIDE
  23. PANTOPROZOLE [Concomitant]
  24. TURMERIC [Concomitant]
     Active Substance: TURMERIC
  25. VITAMIN B COMPLEX [Concomitant]
     Active Substance: CYANOCOBALAMIN\DEXPANTHENOL\NIACINAMIDE\PYRIDOXINE HYDROCHLORIDE\RIBOFLAVIN 5^-PHOSPHATE SODIUM\THIAMINE HYDROCHLORIDE\VITAMIN B COMPLEX
  26. LOSARTAN. [Concomitant]
     Active Substance: LOSARTAN
  27. ASPIRIN. [Concomitant]
     Active Substance: ASPIRIN
  28. HYDROCODONE [Concomitant]
     Active Substance: HYDROCODONE

REACTIONS (1)
  - Urinary tract infection [Unknown]
